FAERS Safety Report 6096977-1 (Version None)
Quarter: 2009Q1

REPORT INFORMATION
  Report Type: 
  Country: None (occurrence: None)
  Receive Date: 20090227
  Receipt Date: 20090216
  Transmission Date: 20090719
  Serious: Yes (Death)
  Sender: FDA-Public Use
  Company Number: TR-PFIZER INC-2009171965

PATIENT

DRUGS (1)
  1. SUNITINIB MALATE [Suspect]
     Dosage: 50 MG, TDD 50MG
     Route: 048

REACTIONS (1)
  - CARDIAC DISORDER [None]
